FAERS Safety Report 24981016 (Version 1)
Quarter: 2025Q1

REPORT INFORMATION
  Report Type: Spontaneous
  Country: US (occurrence: None)
  Receive Date: 20250217
  Receipt Date: 20250217
  Transmission Date: 20250409
  Serious: Yes (Other)
  Sender: FDA-CTU
  Company Number: None

PATIENT
  Age: 42 Year
  Sex: Female
  Weight: 87.75 kg

DRUGS (2)
  1. ANUCORT-HC [Suspect]
     Active Substance: HYDROCORTISONE ACETATE
     Indication: Haemorrhoids
     Dosage: OTHER QUANTITY : 1 SUPPOSITORY(IES);?FREQUENCY : TWICE A DAY;?
     Route: 054
     Dates: start: 20250214, end: 20250216
  2. Anucort-hc suppositories [Concomitant]

REACTIONS (9)
  - Dizziness [None]
  - Headache [None]
  - Tinnitus [None]
  - Neck pain [None]
  - Pain [None]
  - Eye pain [None]
  - Nausea [None]
  - Thirst [None]
  - Pollakiuria [None]

NARRATIVE: CASE EVENT DATE: 20250215
